FAERS Safety Report 19399957 (Version 2)
Quarter: 2021Q2

REPORT INFORMATION
  Report Type: Spontaneous
  Country: US (occurrence: US)
  Receive Date: 20210610
  Receipt Date: 20210624
  Transmission Date: 20210717
  Serious: Yes (Hospitalization)
  Sender: FDA-Public Use
  Company Number: US-COLLEGIUM PHARMACEUTICAL, INC.-2021CGM00646

PATIENT
  Age: 68 Year
  Sex: Female
  Weight: 80.73 kg

DRUGS (2)
  1. XTAMPZA ER [Suspect]
     Active Substance: OXYCODONE
     Indication: PAIN
     Dosage: 18 MG, 2X/DAY (EVERY 12 HOURS)
     Route: 048
     Dates: start: 202012, end: 202102
  2. XTAMPZA ER [Suspect]
     Active Substance: OXYCODONE
     Dosage: 18 MG, 2X/DAY (EVERY 12 HOURS)
     Route: 048
     Dates: start: 202106

REACTIONS (4)
  - Cellulitis [Recovered/Resolved]
  - Performance status decreased [Recovered/Resolved]
  - Asthenia [Recovered/Resolved]
  - Muscle disorder [Recovered/Resolved]

NARRATIVE: CASE EVENT DATE: 202104
